FAERS Safety Report 11247094 (Version 2)
Quarter: 2015Q3

REPORT INFORMATION
  Report Type: Spontaneous
  Country: US (occurrence: US)
  Receive Date: 20150708
  Receipt Date: 20150715
  Transmission Date: 20151125
  Serious: No
  Sender: FDA-Public Use
  Company Number: US-PFIZER INC-2015220388

PATIENT
  Age: 93 Year
  Sex: Male
  Weight: 64 kg

DRUGS (5)
  1. LYRICA [Suspect]
     Active Substance: PREGABALIN
     Indication: PAIN
  2. LYRICA [Suspect]
     Active Substance: PREGABALIN
     Indication: BURNING SENSATION
  3. LYRICA [Suspect]
     Active Substance: PREGABALIN
     Indication: NEUROPATHY PERIPHERAL
     Dosage: 25 MG, 3X/DAY
     Dates: start: 201506
  4. LYRICA [Suspect]
     Active Substance: PREGABALIN
     Indication: PARAESTHESIA
  5. LYRICA [Suspect]
     Active Substance: PREGABALIN
     Indication: PRURITUS

REACTIONS (3)
  - Gait disturbance [Unknown]
  - Drug ineffective for unapproved indication [Unknown]
  - Muscular weakness [Unknown]
